FAERS Safety Report 8859976 (Version 1)
Quarter: 2012Q4

REPORT INFORMATION
  Report Type: 
  Country: US (occurrence: US)
  Receive Date: 20121025
  Receipt Date: 20121025
  Transmission Date: 20130627
  Serious: Yes (Other)
  Sender: FDA-Public Use
  Company Number: US-PFIZER INC-2012261168

PATIENT
  Sex: Female

DRUGS (1)
  1. METHIMAZOLE [Suspect]
     Dosage: UNK

REACTIONS (3)
  - Exophthalmos [Unknown]
  - Thyroid disorder [Unknown]
  - Sluggishness [Unknown]
